FAERS Safety Report 25032039 (Version 6)
Quarter: 2025Q4

REPORT INFORMATION
  Report Type: Spontaneous
  Country: CA (occurrence: CA)
  Receive Date: 20250303
  Receipt Date: 20251006
  Transmission Date: 20260117
  Serious: Yes (Other)
  Sender: PFIZER
  Company Number: CA-PFIZER INC-202200939097

PATIENT
  Age: 30 Year
  Sex: Female

DRUGS (23)
  1. RUXIENCE [Suspect]
     Active Substance: RITUXIMAB-PVVR
     Indication: Rheumatoid arthritis
     Dosage: 1000 MG, DAY 1 AND 15
     Route: 042
     Dates: start: 20220706
  2. RUXIENCE [Suspect]
     Active Substance: RITUXIMAB-PVVR
     Dosage: 1000 MG, DAY 1 AND 15
     Route: 042
     Dates: start: 20220728
  3. RUXIENCE [Suspect]
     Active Substance: RITUXIMAB-PVVR
     Dosage: 1000 MG, DAY 1 AND 15
     Route: 042
     Dates: start: 20230222
  4. RUXIENCE [Suspect]
     Active Substance: RITUXIMAB-PVVR
     Dosage: 1000 MG, DAY 1 AND 15 (DAY 15 DOSE)
     Route: 042
     Dates: start: 20230308
  5. RUXIENCE [Suspect]
     Active Substance: RITUXIMAB-PVVR
     Dosage: 1000 MG, DAY 1 AND 15
     Route: 042
     Dates: start: 20230830
  6. RUXIENCE [Suspect]
     Active Substance: RITUXIMAB-PVVR
     Dosage: 1000 MG, DAY 1 AND 15
     Route: 042
     Dates: start: 20230929, end: 20230929
  7. RUXIENCE [Suspect]
     Active Substance: RITUXIMAB-PVVR
     Dosage: 1000 MG, DAY 1 AND DAY 15 (DAY 15)
     Route: 042
     Dates: start: 20231013
  8. RUXIENCE [Suspect]
     Active Substance: RITUXIMAB-PVVR
     Dosage: 1000 MG, DAY 1 AND 15 (1000 MG, DAY 1)
     Route: 042
     Dates: start: 20240517
  9. RUXIENCE [Suspect]
     Active Substance: RITUXIMAB-PVVR
     Dosage: 1000 MG, AFTER 13 WEEKS AND 5 DAYS (DAY 1 AND DAY 15)
     Route: 042
     Dates: start: 20240821
  10. RUXIENCE [Suspect]
     Active Substance: RITUXIMAB-PVVR
     Dosage: 1000 MG, 31 WEEKS AND 2 DAYS (DAY 1 AND DAY 15)
     Route: 042
     Dates: start: 20250328
  11. RUXIENCE [Suspect]
     Active Substance: RITUXIMAB-PVVR
     Dosage: 1000 MG, DAY 1 AND DAY 15
     Route: 042
     Dates: start: 20250411
  12. RUXIENCE [Suspect]
     Active Substance: RITUXIMAB-PVVR
     Dosage: 1000 MG, DAY 1(DAY1 AND 15 )
     Route: 042
     Dates: start: 20250917
  13. RUXIENCE [Suspect]
     Active Substance: RITUXIMAB-PVVR
     Dosage: 1000 MG, DAY 15 (DAY 1 AND DAY 15)
     Route: 042
     Dates: start: 20251001
  14. RUXIENCE [Suspect]
     Active Substance: RITUXIMAB-PVVR
     Dosage: 1000 MG, DAY 15 (DAY1 AND 15)
     Route: 042
     Dates: start: 20251001
  15. ACETAMINOPHEN [Concomitant]
     Active Substance: ACETAMINOPHEN
     Indication: Premedication
     Dosage: 650 MG, 15-30 MIN PRE INFUSION
     Route: 048
  16. CALCIUM [Concomitant]
     Active Substance: CALCIUM
     Dosage: UNK
  17. DIPHENHYDRAMINE [Concomitant]
     Active Substance: DIPHENHYDRAMINE
     Indication: Premedication
     Dosage: 50 MG 15-30 MIN PRE INFUSION
  18. DIPHENHYDRAMINE [Concomitant]
     Active Substance: DIPHENHYDRAMINE
     Dosage: UNK
     Dates: start: 20240821, end: 20240821
  19. METHYLPREDNISOLONE [Concomitant]
     Active Substance: METHYLPREDNISOLONE
     Indication: Premedication
     Dosage: 100 MG IN 50 ML 0.9 % SODIUM CHLORIDE INJECTION USP 15-30 MIN PRIOR TO INFUSION
     Route: 042
  20. METHYLPREDNISOLONE [Concomitant]
     Active Substance: METHYLPREDNISOLONE
     Dosage: UNK
     Dates: start: 20240821, end: 20240821
  21. PANTOPRAZOLE [Concomitant]
     Active Substance: PANTOPRAZOLE
     Dosage: UNK
  22. PREDNISONE [Concomitant]
     Active Substance: PREDNISONE
     Dosage: UNK
  23. CHOLECALCIFEROL [Concomitant]
     Active Substance: CHOLECALCIFEROL
     Dosage: UNK

REACTIONS (23)
  - Pain [Not Recovered/Not Resolved]
  - Abdominal pain [Not Recovered/Not Resolved]
  - Influenza [Recovering/Resolving]
  - Drug ineffective [Unknown]
  - Feeling hot [Recovered/Resolved]
  - Vertigo [Recovered/Resolved]
  - Vomiting [Not Recovered/Not Resolved]
  - Body temperature increased [Recovered/Resolved]
  - Ulcer [Not Recovered/Not Resolved]
  - Neuralgia [Not Recovered/Not Resolved]
  - Paraesthesia [Unknown]
  - Dizziness [Recovered/Resolved]
  - Nausea [Recovered/Resolved]
  - Condition aggravated [Not Recovered/Not Resolved]
  - Nausea [Recovered/Resolved]
  - Dizziness [Recovered/Resolved]
  - Headache [Recovered/Resolved]
  - Herpes zoster [Recovered/Resolved]
  - Therapeutic response shortened [Unknown]
  - Sinusitis [Recovered/Resolved]
  - Flushing [Recovered/Resolved]
  - Off label use [Unknown]
  - Product use issue [Unknown]

NARRATIVE: CASE EVENT DATE: 20220706
